FAERS Safety Report 5661237-7 (Version None)
Quarter: 2008Q1

REPORT INFORMATION
  Report Type: 
  Country: None (occurrence: None)
  Receive Date: 20080312
  Receipt Date: 20080307
  Transmission Date: 20080703
  Serious: Yes (Other)
  Sender: FDA-Public Use
  Company Number: A0714723A

PATIENT
  Sex: Male

DRUGS (1)
  1. AVANDIA [Suspect]
     Indication: DRUG USE FOR UNKNOWN INDICATION
     Dates: start: 20060101, end: 20060701

REACTIONS (3)
  - BRAIN INJURY [None]
  - CEREBROVASCULAR ACCIDENT [None]
  - VISUAL DISTURBANCE [None]
